FAERS Safety Report 10044944 (Version 1)
Quarter: 2014Q1

REPORT INFORMATION
  Report Type: Spontaneous
  Country: IL (occurrence: IL)
  Receive Date: 20140328
  Receipt Date: 20140328
  Transmission Date: 20141002
  Serious: Yes (Hospitalization, Other)
  Sender: FDA-Public Use
  Company Number: IL-ABBVIE-14P-082-1214895-00

PATIENT
  Sex: Female
  Weight: 51 kg

DRUGS (4)
  1. HUMIRA 40MG/0.4ML [Suspect]
     Indication: CROHN^S DISEASE
     Route: 058
     Dates: start: 20080114, end: 200809
  2. HUMIRA 40MG/0.4ML [Suspect]
     Dates: start: 201401
  3. PURI NETHOL [Concomitant]
     Indication: PRODUCT USED FOR UNKNOWN INDICATION
  4. B12 [Concomitant]
     Indication: PRODUCT USED FOR UNKNOWN INDICATION
     Route: 050

REACTIONS (7)
  - Loss of consciousness [Unknown]
  - Crohn^s disease [Recovering/Resolving]
  - Crohn^s disease [Recovering/Resolving]
  - Gastrointestinal anastomotic leak [Unknown]
  - Cholecystectomy [Unknown]
  - Abdominal hernia [Unknown]
  - C-reactive protein increased [Unknown]
